FAERS Safety Report 18799338 (Version 1)
Quarter: 2021Q1

REPORT INFORMATION
  Report Type: Spontaneous
  Country: US (occurrence: US)
  Receive Date: 20210128
  Receipt Date: 20210128
  Transmission Date: 20210419
  Serious: No
  Sender: FDA-Public Use
  Company Number: None

PATIENT
  Age: 42 Year
  Sex: Female
  Weight: 85.5 kg

DRUGS (10)
  1. METFORMIN [Concomitant]
     Active Substance: METFORMIN HYDROCHLORIDE
  2. VITAMIN D [Concomitant]
     Active Substance: VITAMIN D NOS
  3. LEVOTHYROXINE. [Concomitant]
     Active Substance: LEVOTHYROXINE
  4. LOSARTAN. [Concomitant]
     Active Substance: LOSARTAN
  5. TRAZODONE [Concomitant]
     Active Substance: TRAZODONE HYDROCHLORIDE
  6. BAMLANIVIMAB. [Suspect]
     Active Substance: BAMLANIVIMAB
     Indication: COVID-19
     Route: 042
     Dates: start: 20210126, end: 20210126
  7. GLYBURIDE. [Concomitant]
     Active Substance: GLYBURIDE
  8. VITAMIN C [Concomitant]
     Active Substance: ASCORBIC ACID
  9. TUMERIC [Concomitant]
     Active Substance: HERBALS\TURMERIC
  10. ZINC. [Concomitant]
     Active Substance: ZINC

REACTIONS (2)
  - Pyrexia [None]
  - Disease progression [None]

NARRATIVE: CASE EVENT DATE: 20210126
